FAERS Safety Report 22647512 (Version 1)
Quarter: 2023Q2

REPORT INFORMATION
  Report Type: Spontaneous
  Country: KR (occurrence: KR)
  Receive Date: 20230628
  Receipt Date: 20230628
  Transmission Date: 20230722
  Serious: Yes (Other)
  Sender: FDA-Public Use
  Company Number: KR-NOVITIUMPHARMA-2023KRNVP01004

PATIENT
  Age: 35 Year
  Sex: Male

DRUGS (3)
  1. DAPSONE [Suspect]
     Active Substance: DAPSONE
     Indication: Immunosuppression
  2. COLCHICINE [Concomitant]
     Active Substance: COLCHICINE
     Indication: Immunosuppression
  3. MYCOPHENOLIC ACID [Concomitant]
     Active Substance: MYCOPHENOLIC ACID
     Indication: Immunosuppression

REACTIONS (1)
  - Stenotrophomonas infection [Recovering/Resolving]
